FAERS Safety Report 6998603-3 (Version None)
Quarter: 2010Q3

REPORT INFORMATION
  Report Type: 
  Country: None (occurrence: None)
  Receive Date: 20100920
  Receipt Date: 20070606
  Transmission Date: 20110219
  Serious: Yes (Other)
  Sender: FDA-Public Use
  Company Number: US-ASTRAZENECA-2006UW24292

PATIENT
  Sex: Female
  Weight: 49.9 kg

DRUGS (4)
  1. SEROQUEL [Suspect]
     Indication: MENTAL DISORDER
     Route: 048
  2. HALDOL [Concomitant]
     Dates: start: 19960101
  3. ZYPREXA [Concomitant]
     Dates: start: 20010101
  4. METHADONE [Concomitant]

REACTIONS (1)
  - PANCREATITIS [None]
